FAERS Safety Report 4463006-2 (Version None)
Quarter: 2004Q3

REPORT INFORMATION
  Report Type: 
  Country: None (occurrence: None)
  Receive Date: 20040930
  Receipt Date: 20040920
  Transmission Date: 20050211
  Serious: Yes (Hospitalization)
  Sender: FDA-Public Use
  Company Number: ES-BRISTOL-MYERS SQUIBB COMPANY-12707691

PATIENT
  Age: 38 Year
  Sex: Female
  Weight: 78 kg

DRUGS (4)
  1. TAXOL [Suspect]
     Indication: BREAST CANCER
     Dosage: 1ST DOSE: 08MAR04
     Route: 042
     Dates: start: 20040526, end: 20040526
  2. GEMZAR [Suspect]
     Indication: BREAST CANCER
     Dosage: 1ST DOSE: 08MAR04
     Route: 042
     Dates: start: 20040526, end: 20040526
  3. ADRIAMYCIN PFS [Suspect]
     Indication: BREAST CANCER
     Dosage: 1ST DOSE: 08MAR04
     Route: 042
     Dates: start: 20040526, end: 20040526
  4. LEVOTHROID [Concomitant]
     Indication: HYPOTHYROIDISM
     Route: 048

REACTIONS (4)
  - DIARRHOEA [None]
  - ODYNOPHAGIA [None]
  - PYREXIA [None]
  - THROMBOCYTOPENIA [None]
